FAERS Safety Report 18867713 (Version 1)
Quarter: 2021Q1

REPORT INFORMATION
  Report Type: Spontaneous
  Country: FR (occurrence: FR)
  Receive Date: 20210209
  Receipt Date: 20210209
  Transmission Date: 20210420
  Serious: Yes (Death)
  Sender: FDA-Public Use
  Company Number: FR-TEVA-2021-FR-1877530

PATIENT
  Age: 76 Year
  Sex: Male

DRUGS (11)
  1. INNOHEP [Concomitant]
     Active Substance: TINZAPARIN SODIUM
  2. PANTOPRAZOLE [Concomitant]
     Active Substance: PANTOPRAZOLE
  3. FENOFIBRATE. [Concomitant]
     Active Substance: FENOFIBRATE
  4. KARDEGIC [Concomitant]
     Active Substance: ASPIRIN DL-LYSINE
     Dosage: POWDER FOR ORAL SOLUTION IN SACHET?DOSE
  5. RAMIPRIL. [Concomitant]
     Active Substance: RAMIPRIL
  6. OXALIPLATINE [Suspect]
     Active Substance: OXALIPLATIN
     Indication: ADENOCARCINOMA PANCREAS
     Dosage: 150MILLIGRAM
     Route: 051
     Dates: start: 20200309, end: 20200409
  7. IRINOTECAN [Suspect]
     Active Substance: IRINOTECAN
     Indication: ADENOCARCINOMA PANCREAS
     Dosage: 320MILLIGRAM
     Route: 051
     Dates: start: 20200309, end: 20200409
  8. LEVOFOLINATE CALCIQUE [Suspect]
     Active Substance: LEVOLEUCOVORIN CALCIUM
     Indication: ADENOCARCINOMA PANCREAS
     Dosage: 350MILLIGRAM
     Route: 051
     Dates: start: 20200309, end: 20200409
  9. FLUOROURACILE [Suspect]
     Active Substance: FLUOROURACIL
     Indication: ADENOCARCINOMA PANCREAS
     Dosage: 4.23GRAM
     Route: 051
     Dates: start: 20200309, end: 20200409
  10. DOLIPRANE [Concomitant]
     Active Substance: ACETAMINOPHEN
  11. ESIDREX [Concomitant]
     Active Substance: HYDROCHLOROTHIAZIDE

REACTIONS (4)
  - Pseudomembranous colitis [Fatal]
  - Septic shock [Fatal]
  - Hypovolaemic shock [Fatal]
  - Clostridium difficile infection [Fatal]

NARRATIVE: CASE EVENT DATE: 20200317
